FAERS Safety Report 10618941 (Version 1)
Quarter: 2014Q4

REPORT INFORMATION
  Report Type: Spontaneous
  Country: JP (occurrence: None)
  Receive Date: 20141126
  Receipt Date: 20141126
  Transmission Date: 20150529
  Serious: Yes (Other)
  Sender: FDA-Public Use
  Company Number: AE-SPE-2014-033

PATIENT
  Age: 40 Year
  Sex: Male

DRUGS (1)
  1. MEIACT MS [Suspect]
     Active Substance: CEFDITOREN PIVOXIL
     Dates: start: 201301, end: 201301

REACTIONS (1)
  - Drug eruption [None]
